FAERS Safety Report 6272439-3 (Version None)
Quarter: 2009Q3

REPORT INFORMATION
  Report Type: 
  Country: None (occurrence: None)
  Receive Date: 20090715
  Receipt Date: 20090702
  Transmission Date: 20100115
  Serious: Yes (Hospitalization)
  Sender: FDA-Public Use
  Company Number: AE-2009-057

PATIENT
  Age: 45 Year
  Sex: Female
  Weight: 72 kg

DRUGS (2)
  1. HYDROCHLOROTHIAZIDE [Suspect]
     Dosage: 25MG, QD
  2. RAMIPRIL [Concomitant]

REACTIONS (4)
  - ENCEPHALOPATHY [None]
  - HYPONATRAEMIA [None]
  - POLYDIPSIA [None]
  - RHABDOMYOLYSIS [None]
